FAERS Safety Report 6615588-X (Version None)
Quarter: 2010Q1

REPORT INFORMATION
  Report Type: 
  Country: None (occurrence: None)
  Receive Date: 20100305
  Receipt Date: 20100122
  Transmission Date: 20100710
  Serious: No
  Sender: FDA-Public Use
  Company Number: US-BAYER-201012490NA

PATIENT
  Sex: Female

DRUGS (2)
  1. NEXAVAR [Suspect]
     Indication: DRUG USE FOR UNKNOWN INDICATION
     Dosage: NEXAVAR WAS DISCONTINUED DUE TO AN UPCOMING PROCEDURE (NOS)
     Route: 048
     Dates: end: 20100101
  2. DOXORUBICIN HCL [Concomitant]
     Dosage: RECEIVED DOXIRUBICIN ON 08-JAN-2010

REACTIONS (1)
  - DERMATITIS BULLOUS [None]
